FAERS Safety Report 15493560 (Version 1)
Quarter: 2018Q4

REPORT INFORMATION
  Report Type: Spontaneous
  Country: US (occurrence: US)
  Receive Date: 20181004
  Receipt Date: 20181004
  Transmission Date: 20190205
  Serious: Yes (Hospitalization)
  Sender: FDA-Public Use
  Company Number: None

PATIENT
  Age: 70 Year
  Sex: Female

DRUGS (1)
  1. SOMAVERT [Suspect]
     Active Substance: PEGVISOMANT
     Indication: HYPOTHYROIDISM
     Dosage: ?          OTHER FREQUENCY:TIW;?
     Route: 058
     Dates: start: 20171214

REACTIONS (1)
  - Wrist fracture [None]

NARRATIVE: CASE EVENT DATE: 20181003
